FAERS Safety Report 5201058-2 (Version None)
Quarter: 2007Q1

REPORT INFORMATION
  Report Type: 
  Country: None (occurrence: None)
  Receive Date: 20070103
  Receipt Date: 20061218
  Transmission Date: 20070707
  Serious: Yes (Hospitalization)
  Sender: FDA-Public Use
  Company Number: GXKR2006BR08211

PATIENT
  Age: 15 Year
  Sex: Male

DRUGS (8)
  1. PROPRANOLOL [Suspect]
     Indication: BLOOD PRESSURE INCREASED
     Dosage: 160 MG/DAY
  2. SULFAMETHOXAZOLE AND TRIMETHOPRIM [Suspect]
     Indication: DRUG USE FOR UNKNOWN INDICATION
     Dosage: 80-400 MG/DAY
  3. TACROLIMUS (TACROLIMUS) [Suspect]
     Indication: KIDNEY TRANSPLANT REJECTION
     Dosage: 6 MG/DAY
  4. CYCLOSPORINE [Concomitant]
  5. MYCOPHENOLATE MOFETIL [Concomitant]
  6. FUROSEMIDE [Concomitant]
  7. ALLOPURINOL [Concomitant]
  8. SODIUM BICARBONATE IN PLASTIC CONTAINER [Concomitant]

REACTIONS (13)
  - ABASIA [None]
  - ACIDOSIS [None]
  - ASTHENIA [None]
  - BLOOD PRESSURE INCREASED [None]
  - COMPLICATIONS OF TRANSPLANTED KIDNEY [None]
  - DEHYDRATION [None]
  - ELECTROCARDIOGRAM ABNORMAL [None]
  - GRAFT DYSFUNCTION [None]
  - HEADACHE [None]
  - HYPERKALAEMIA [None]
  - HYPOVOLAEMIA [None]
  - PH URINE DECREASED [None]
  - RENAL TUBULAR ACIDOSIS [None]
